FAERS Safety Report 11723218 (Version 1)
Quarter: 2015Q4

REPORT INFORMATION
  Report Type: Spontaneous
  Country: US (occurrence: None)
  Receive Date: 20151110
  Receipt Date: 20151110
  Transmission Date: 20160304
  Serious: Yes (Other)
  Sender: FDA-Public Use
  Company Number: None

PATIENT
  Age: 36 Year
  Sex: Female
  Weight: 62.6 kg

DRUGS (4)
  1. SERTRALINE [Concomitant]
     Active Substance: SERTRALINE HYDROCHLORIDE
  2. EMERGEN-C [Concomitant]
     Active Substance: VITAMINS
  3. VITAMIN D [Concomitant]
     Active Substance: CHOLECALCIFEROL
  4. CIPROFLOXACIN HCL 500MG WEST-WARD, INC. [Suspect]
     Active Substance: CIPROFLOXACIN HYDROCHLORIDE
     Indication: PNEUMONIA
     Route: 048
     Dates: start: 20151104, end: 20151106

REACTIONS (12)
  - Rash pruritic [None]
  - Headache [None]
  - Hot flush [None]
  - Thirst [None]
  - Vomiting [None]
  - Decreased appetite [None]
  - Dry mouth [None]
  - Nausea [None]
  - Dizziness [None]
  - Diarrhoea [None]
  - Paraesthesia [None]
  - Migraine [None]

NARRATIVE: CASE EVENT DATE: 20151106
